FAERS Safety Report 6127903-4 (Version None)
Quarter: 2009Q1

REPORT INFORMATION
  Report Type: 
  Country: None (occurrence: None)
  Receive Date: 20090320
  Receipt Date: 20090320
  Transmission Date: 20090719
  Serious: No
  Sender: FDA-Public Use
  Company Number: None

PATIENT
  Sex: Female

DRUGS (10)
  1. ZOMETA [Suspect]
     Indication: BREAST CANCER METASTATIC
     Dosage: 4 MG MONTHLY IV
     Route: 042
     Dates: start: 20020101, end: 20060101
  2. . [Concomitant]
  3. CHEMOTHERAPY [Concomitant]
  4. PROCARDIA [Concomitant]
  5. LIPITOR [Concomitant]
  6. PAXIL [Concomitant]
  7. PAXIL [Concomitant]
  8. FEMARA [Concomitant]
  9. NEURONTIN [Concomitant]
  10. ZIAC [Concomitant]

REACTIONS (4)
  - OEDEMA [None]
  - OSTEONECROSIS [None]
  - PAIN [None]
  - PURULENT DISCHARGE [None]
